FAERS Safety Report 25841525 (Version 1)
Quarter: 2025Q3

REPORT INFORMATION
  Report Type: Spontaneous
  Country: US (occurrence: US)
  Receive Date: 20250924
  Receipt Date: 20250924
  Transmission Date: 20251020
  Serious: No
  Sender: MERCK SHARP & DOHME LLC
  Company Number: US-009507513-2330800

PATIENT
  Sex: Female
  Weight: 61.2 kg

DRUGS (30)
  1. SOTATERCEPT [Suspect]
     Active Substance: SOTATERCEPT
     Indication: Product used for unknown indication
     Route: 050
  2. SOTATERCEPT [Suspect]
     Active Substance: SOTATERCEPT
  3. SOTATERCEPT [Suspect]
     Active Substance: SOTATERCEPT
  4. SOTATERCEPT [Suspect]
     Active Substance: SOTATERCEPT
  5. .ALPHA.-LIPOIC ACID [Concomitant]
     Active Substance: .ALPHA.-LIPOIC ACID
  6. Midodrine HCL (Midodrine hydrochloride) [Concomitant]
  7. ROSUVASTATIN CALCIUM [Concomitant]
     Active Substance: ROSUVASTATIN CALCIUM
  8. Pepcid ac (Famotidine) [Concomitant]
  9. ADEMPAS [Concomitant]
     Active Substance: RIOCIGUAT
  10. MOUNJARO [Concomitant]
     Active Substance: TIRZEPATIDE
  11. FOLIC ACID [Concomitant]
     Active Substance: FOLIC ACID
  12. POTASSIUM CHLORIDE [Concomitant]
     Active Substance: POTASSIUM CHLORIDE
  13. PREDNISONE [Concomitant]
     Active Substance: PREDNISONE
  14. OPSUMIT [Concomitant]
     Active Substance: MACITENTAN
  15. Toujeo max solostar (Insulin glargine) [Concomitant]
  16. Co q-10 (Ubidecarenone) [Concomitant]
  17. MAGNESIUM [Concomitant]
     Active Substance: MAGNESIUM
  18. Vitamin k2 (Menatetrenone) [Concomitant]
  19. B12 active (Mecobalamin) [Concomitant]
  20. ELIQUIS [Concomitant]
     Active Substance: APIXABAN
  21. VITAMIN D3 [Concomitant]
     Active Substance: CHOLECALCIFEROL
  22. MYFORTIC [Concomitant]
     Active Substance: MYCOPHENOLATE SODIUM
  23. OXYGEN [Concomitant]
     Active Substance: OXYGEN
  24. Flaxseed oil (Linum usitatissimum seed oil) [Concomitant]
  25. FUROSEMIDE [Concomitant]
     Active Substance: FUROSEMIDE
  26. ACETAMINOPHEN [Concomitant]
     Active Substance: ACETAMINOPHEN
  27. Pfizer BioNTech COVID-19 vaccine (Tozinameran) [Concomitant]
  28. B complex (Vitamin b complex) Tablet [Concomitant]
  29. ORENITRAM [Concomitant]
     Active Substance: TREPROSTINIL
     Indication: Pulmonary arterial hypertension
     Route: 048
     Dates: start: 20240202
  30. ORENITRAM [Concomitant]
     Active Substance: TREPROSTINIL
     Indication: Pulmonary arterial hypertension
     Dosage: 0.25 MG, BID
     Route: 048

REACTIONS (1)
  - Inappropriate schedule of product administration [Unknown]

NARRATIVE: CASE EVENT DATE: 20250101
